FAERS Safety Report 9342366 (Version 2)
Quarter: 2013Q3

REPORT INFORMATION
  Report Type: Spontaneous
  Country: US (occurrence: US)
  Receive Date: 20130611
  Receipt Date: 20130709
  Transmission Date: 20140515
  Serious: Yes (Death, Hospitalization)
  Sender: FDA-Public Use
  Company Number: US-INCYTE CORPORATION-2013IN001154

PATIENT
  Age: 71 Year
  Sex: Female
  Weight: 70.75 kg

DRUGS (1)
  1. JAKAFI [Suspect]
     Indication: POLYCYTHAEMIA VERA
     Dosage: 20 MG, BID
     Route: 048
     Dates: start: 20120925, end: 20130410

REACTIONS (2)
  - Death [Fatal]
  - Hospitalisation [Unknown]
